FAERS Safety Report 7822161-4 (Version None)
Quarter: 2011Q4

REPORT INFORMATION
  Report Type: 
  Country: None (occurrence: None)
  Receive Date: 20111018
  Receipt Date: 20110207
  Transmission Date: 20120403
  Serious: No
  Sender: FDA-Public Use
  Company Number: US-ASTRAZENECA-2010SE41978

PATIENT
  Age: 95 Year
  Sex: Female

DRUGS (1)
  1. SYMBICORT [Suspect]
     Route: 055

REACTIONS (6)
  - ASTHENIA [None]
  - ARTHRITIS [None]
  - DYSPNOEA [None]
  - MALAISE [None]
  - DRUG DOSE OMISSION [None]
  - OXYGEN SUPPLEMENTATION [None]
